FAERS Safety Report 8174407-3 (Version None)
Quarter: 2012Q1

REPORT INFORMATION
  Report Type: 
  Country: None (occurrence: None)
  Receive Date: 20120229
  Receipt Date: 20120223
  Transmission Date: 20120608
  Serious: Yes (Death)
  Sender: FDA-Public Use
  Company Number: GB-ELI_LILLY_AND_COMPANY-GB201202006722

PATIENT
  Age: 54 Year
  Sex: Male
  Weight: 89 kg

DRUGS (5)
  1. TADALAFIL [Suspect]
     Indication: ERECTILE DYSFUNCTION
     Dosage: UNK
     Route: 048
  2. SILDENAFIL [Concomitant]
     Indication: ERECTILE DYSFUNCTION
     Dosage: UNK
     Route: 048
  3. VENTOLIN                                /SCH/ [Concomitant]
     Indication: ASTHMA
     Dosage: 200 UG, UNK
     Route: 055
  4. BECLOMETHASONE DIPROPIONATE [Concomitant]
     Indication: ASTHMA
     Dosage: 400 UG, BID
     Route: 055
  5. TEGRETOL [Concomitant]
     Indication: EPILEPSY
     Dosage: 100 MG, UNK

REACTIONS (1)
  - PULMONARY HAEMORRHAGE [None]
